FAERS Safety Report 17099706 (Version 1)
Quarter: 2019Q4

REPORT INFORMATION
  Report Type: Spontaneous
  Country: FR (occurrence: FR)
  Receive Date: 20191202
  Receipt Date: 20191202
  Transmission Date: 20200122
  Serious: Yes (Hospitalization)
  Sender: FDA-Public Use
  Company Number: FR-MYLANLABS-2019M1115474

PATIENT
  Age: 6 Year
  Sex: Male
  Weight: 30 kg

DRUGS (3)
  1. ETOPOSIDE MYLAN [Suspect]
     Active Substance: ETOPOSIDE
     Indication: NEUROBLASTOMA
     Dosage: 184 MG*2/CURE SELON PROTOCOLE
     Route: 042
     Dates: start: 20190409, end: 20190613
  2. VINCRISTINE HOSPIRA [Suspect]
     Active Substance: VINCRISTINE
     Indication: NEUROBLASTOMA
     Dosage: 1.60MG*1/CURE SELON PROTOCOLE
     Route: 042
     Dates: start: 20190409, end: 20190612
  3. ENDOXAN                            /00021102/ [Suspect]
     Active Substance: CYCLOPHOSPHAMIDE
     Indication: NEUROBLASTOMA
     Dosage: 1100 MG*2/CURE SELON PROTOCOLE
     Route: 042
     Dates: start: 20190429, end: 20190613

REACTIONS (3)
  - Encephalopathy [Not Recovered/Not Resolved]
  - Dysarthria [Not Recovered/Not Resolved]
  - Confusional state [Not Recovered/Not Resolved]

NARRATIVE: CASE EVENT DATE: 20190612
